FAERS Safety Report 6618587-7 (Version None)
Quarter: 2010Q1

REPORT INFORMATION
  Report Type: 
  Country: None (occurrence: None)
  Receive Date: 20100308
  Receipt Date: 20100226
  Transmission Date: 20100710
  Serious: Yes (Other)
  Sender: FDA-Public Use
  Company Number: GXKR2010IT02366

PATIENT
  Age: 69 Year
  Sex: Female

DRUGS (12)
  1. CLARITHROMYCIN [Suspect]
     Indication: CHRONIC OBSTRUCTIVE PULMONARY DISEASE
     Dosage: 500 MG, BID
     Route: 065
     Dates: start: 20080801
  2. CLARITHROMYCIN [Interacting]
     Dosage: 250 MG, BID
     Route: 065
  3. BOSENTAN [Interacting]
     Indication: PULMONARY ARTERIAL HYPERTENSION
     Dosage: STANDARD DOSE
     Route: 065
     Dates: start: 20031101
  4. BOSENTAN [Interacting]
     Dosage: 125 MG, BID
     Route: 065
  5. ILOPROST [Concomitant]
     Dosage: UNK
  6. OMEPRAZOLE [Concomitant]
     Dosage: 20 MG/DAY
     Route: 065
  7. ACETYLSALICYLIC ACID [Concomitant]
     Dosage: 100 MG/DAY
     Route: 065
  8. METHYLPREDNISOLONE [Concomitant]
     Dosage: 16 MG/DAY
     Route: 065
  9. HYDROXYCHLOROQUINE SULFATE [Concomitant]
     Dosage: 200 MG/DAY
     Route: 065
  10. PHENOBARBITAL [Concomitant]
     Dosage: 100 MG/DAY
     Route: 065
  11. FLUTICASONE PROPIONATE W/SALMETEROL [Concomitant]
     Dosage: UNK
  12. PIPERACILLIN W/TAZOBACTAM [Concomitant]
     Dosage: 2.25 G, TID
     Route: 065

REACTIONS (2)
  - DRUG INTERACTION [None]
  - LIVER INJURY [None]
